FAERS Safety Report 9324726 (Version 1)
Quarter: 2013Q2

REPORT INFORMATION
  Report Type: Spontaneous
  Country: US (occurrence: US)
  Receive Date: 20130603
  Receipt Date: 20130603
  Transmission Date: 20140414
  Serious: Yes (Hospitalization)
  Sender: FDA-Public Use
  Company Number: US-B.I. PHARMACEUTICALS,INC./RIDGEFIELD-2013-BI-15341PF

PATIENT
  Age: 59 Year
  Sex: Female

DRUGS (15)
  1. SPIRIVA [Suspect]
     Dosage: 18 MCG
     Route: 055
  2. PRILOSEC [Concomitant]
     Dosage: 20 MG
     Route: 048
  3. ATENOLOL [Concomitant]
     Dosage: 50 MG
     Route: 048
  4. GABAPENTIN [Concomitant]
     Dosage: 1200 MG
     Route: 048
  5. LOVASTATIN [Concomitant]
     Dosage: 20 MG
     Route: 048
  6. ALBUTEROL SULFATE [Concomitant]
     Dosage: STRENGTH: (2.5MG/3ML), 0.083% NEBULISATION SOLUTION
     Route: 055
  7. ADVAIR DISKUS [Concomitant]
     Dosage: STRENGTH: 500-50 MCG/DOSE
     Route: 055
  8. NICOTINE [Concomitant]
     Dosage: 1 ANZ
     Route: 062
  9. LISINOPRIL HYDROCHLOROTHIAZIDE [Concomitant]
     Route: 048
  10. DETROL LA [Concomitant]
     Dosage: 4 MG
     Route: 048
  11. ATIVAN [Concomitant]
     Dosage: 1.5 MG
     Route: 048
  12. TRAZODONE HCL [Concomitant]
     Dosage: 50 MG
     Route: 048
  13. CYMBALTA [Concomitant]
     Dosage: 60 MG
     Route: 048
  14. TRIAMCINOLONE ACETONIDE [Concomitant]
     Dosage: STRENGTH: 1APPLICATION, DAILY DOSE: 2 APPLICATION
     Route: 061
  15. METFORMIN HCL [Concomitant]
     Dosage: 1000 MG
     Route: 048

REACTIONS (2)
  - Lobar pneumonia [Unknown]
  - Chronic obstructive pulmonary disease [Unknown]
